FAERS Safety Report 5037652-1 (Version None)
Quarter: 2006Q2

REPORT INFORMATION
  Report Type: 
  Country: None (occurrence: None)
  Receive Date: 20060623
  Receipt Date: 20060608
  Transmission Date: 20061013
  Serious: Yes (Death)
  Sender: FDA-Public Use
  Company Number: SPVI-2006-00027

PATIENT
  Age: 38 Year
  Sex: Female

DRUGS (1)
  1. ADDERALL 20 [Suspect]

REACTIONS (6)
  - DRUG ABUSER [None]
  - FALL [None]
  - HYPERTROPHIC CARDIOMYOPATHY [None]
  - SUDDEN DEATH [None]
  - VENTRICLE RUPTURE [None]
  - VICTIM OF CRIME [None]
